FAERS Safety Report 12750411 (Version 2)
Quarter: 2016Q3

REPORT INFORMATION
  Report Type: Report from Study
  Country: AU (occurrence: AU)
  Receive Date: 20160916
  Receipt Date: 20160923
  Transmission Date: 20161109
  Serious: Yes (Other)
  Sender: FDA-Public Use
  Company Number: AU-CELGENEUS-AUS-2016051312

PATIENT
  Sex: Female

DRUGS (1)
  1. OTEZLA [Suspect]
     Active Substance: APREMILAST
     Indication: PSORIATIC ARTHROPATHY
     Dosage: 60 MILLIGRAM
     Route: 048
     Dates: start: 20160405, end: 20160524

REACTIONS (5)
  - Nausea [Unknown]
  - Dehydration [Unknown]
  - Vomiting [Unknown]
  - Circulatory collapse [Unknown]
  - Diarrhoea [Unknown]
